FAERS Safety Report 5675552-4 (Version None)
Quarter: 2008Q1

REPORT INFORMATION
  Report Type: 
  Country: None (occurrence: None)
  Receive Date: 20080317
  Receipt Date: 20080312
  Transmission Date: 20080703
  Serious: Yes (Death, Hospitalization, Other)
  Sender: FDA-Public Use
  Company Number: TCI2008A00128

PATIENT
  Age: 79 Year
  Sex: Male

DRUGS (10)
  1. LEUPROLIDE ACETATE [Suspect]
     Indication: PROSTATE CANCER
     Dosage: 11.25 MG (11.25 MG, 1 IN 1 12 WK) SUBCUTANEOUS
     Route: 058
     Dates: start: 20071213, end: 20071213
  2. CASODEX [Suspect]
     Dosage: 80 MG (80 MG, 1 IN 1 D) PER ORAL
     Route: 048
     Dates: start: 20071210, end: 20080107
  3. PIROAN (DIPYRIDAMOLE) (TABLETS) [Concomitant]
  4. BUFFERIN [Concomitant]
  5. NEUQUINON (UBIDECARENONE) (PREPARATION FOR ORAL USE (NOS)) [Concomitant]
  6. ACTOSIN (BUCLADESINE SODIUM) [Concomitant]
  7. TANATRIL (IMIDAPRIL HYDROCHLORIDE) (TABLETS) [Concomitant]
  8. VASATREL F (TRIMETAZIDINE HYDROCHLORIDE) (PREPARATION FOR ORAL USE (NO [Concomitant]
  9. LOXONIN (LOXOPROFEN SODIUM) [Concomitant]
  10. MUCOSTA (REBAMIPIDE) (PREPARATIONFOR ORAL USE (NOS)) [Concomitant]

REACTIONS (4)
  - INTERSTITIAL LUNG DISEASE [None]
  - PNEUMOCYSTIS JIROVECI PNEUMONIA [None]
  - PSEUDOMONAS INFECTION [None]
  - RESPIRATORY FAILURE [None]
